FAERS Safety Report 23724672 (Version 2)
Quarter: 2024Q2

REPORT INFORMATION
  Report Type: Spontaneous
  Country: US (occurrence: US)
  Receive Date: 20240409
  Receipt Date: 20240413
  Transmission Date: 20240716
  Serious: No
  Sender: FDA-Public Use
  Company Number: US-SANOFI-01999854

PATIENT
  Age: 48 Year
  Sex: Female

DRUGS (3)
  1. LANTUS SOLOSTAR [Suspect]
     Active Substance: INSULIN GLARGINE
     Indication: Type 2 diabetes mellitus
     Dosage: 76 IU, QD
  2. NOVOLOG [Concomitant]
     Active Substance: INSULIN ASPART
     Dosage: UNK
  3. MOUNJARO [Concomitant]
     Active Substance: TIRZEPATIDE
     Dosage: UNK

REACTIONS (3)
  - Blood glucose increased [Unknown]
  - Incorrect dose administered [Unknown]
  - Device issue [Unknown]
